FAERS Safety Report 4308692-2 (Version None)
Quarter: 2004Q1

REPORT INFORMATION
  Report Type: 
  Country: None (occurrence: None)
  Receive Date: 20040226
  Receipt Date: 20040211
  Transmission Date: 20041129
  Serious: Yes (Other)
  Sender: FDA-Public Use
  Company Number: 235363

PATIENT
  Sex: Male

DRUGS (3)
  1. ACTRAPID NOVOLET (INSULIN HUMAN) SOLUTION FOR INJECTION, 100IU/ML [Suspect]
     Indication: DIABETES MELLITUS
  2. PROTAPHANE (INSULIN HUMAN) SUSPENSION FOR INJECTION [Concomitant]
  3. HUMALOG [Concomitant]

REACTIONS (6)
  - ABDOMINAL DISCOMFORT [None]
  - ABDOMINAL DISTENSION [None]
  - COUGH [None]
  - DIFFICULTY IN WALKING [None]
  - FLUSHING [None]
  - HEADACHE [None]
